FAERS Safety Report 9255574 (Version 2)
Quarter: 2013Q2

REPORT INFORMATION
  Report Type: Spontaneous
  Country: US (occurrence: US)
  Receive Date: 20130425
  Receipt Date: 20130531
  Transmission Date: 20140414
  Serious: Yes (Other)
  Sender: FDA-Public Use
  Company Number: US-GLAXOSMITHKLINE-A1020801A

PATIENT
  Sex: 0

DRUGS (2)
  1. LAMICTAL [Suspect]
     Indication: PRODUCT USED FOR UNKNOWN INDICATION
     Dosage: 25MG UNKNOWN
     Route: 065
  2. LAMICTAL [Suspect]
     Indication: PRODUCT USED FOR UNKNOWN INDICATION
     Dosage: 25MG UNKNOWN
     Route: 065

REACTIONS (3)
  - Convulsion [Unknown]
  - Product quality issue [Unknown]
  - Drug dispensing error [Unknown]
